FAERS Safety Report 8384672-5 (Version None)
Quarter: 2012Q2

REPORT INFORMATION
  Report Type: 
  Country: None (occurrence: None)
  Receive Date: 20120524
  Receipt Date: 20120514
  Transmission Date: 20120825
  Serious: Yes (Hospitalization, Other)
  Sender: FDA-Public Use
  Company Number: US-ELI_LILLY_AND_COMPANY-US201205006192

PATIENT
  Sex: Female

DRUGS (2)
  1. HUMALOG [Suspect]
     Indication: DIABETES MELLITUS
     Dosage: 15 U, TID
  2. HUMALOG [Suspect]
     Dosage: 50 U, EACH EVENING

REACTIONS (9)
  - SURGERY [None]
  - ARTHRITIS [None]
  - VISUAL ACUITY REDUCED [None]
  - KNEE ARTHROPLASTY [None]
  - ROAD TRAFFIC ACCIDENT [None]
  - LIMB OPERATION [None]
  - UPPER LIMB FRACTURE [None]
  - FALL [None]
  - PAIN [None]
